FAERS Safety Report 4636722-7 (Version None)
Quarter: 2005Q2

REPORT INFORMATION
  Report Type: 
  Country: None (occurrence: None)
  Receive Date: 20050414
  Receipt Date: 20050404
  Transmission Date: 20051028
  Serious: Yes (Other)
  Sender: FDA-Public Use
  Company Number: 141750USA

PATIENT
  Age: 29 Year
  Sex: Female

DRUGS (4)
  1. PROMETHAZINE [Suspect]
     Dates: start: 20040701
  2. KEFLEX [Suspect]
     Dates: start: 20040701
  3. OXYCODONE [Concomitant]
  4. KEFLEX [Concomitant]

REACTIONS (8)
  - ABORTION SPONTANEOUS [None]
  - DRUG EXPOSURE DURING PREGNANCY [None]
  - DRUG HYPERSENSITIVITY [None]
  - INJECTION SITE IRRITATION [None]
  - POST ABORTION HAEMORRHAGE [None]
  - POSTPARTUM HYPOPITUITARISM [None]
  - PREMATURE SEPARATION OF PLACENTA [None]
  - ULTRASOUND ANTENATAL SCREEN ABNORMAL [None]
